FAERS Safety Report 13307803 (Version 1)
Quarter: 2017Q1

REPORT INFORMATION
  Report Type: Report from Study
  Country: None (occurrence: US)
  Receive Date: 20170308
  Receipt Date: 20170308
  Transmission Date: 20170428
  Serious: Yes (Hospitalization, Other)
  Sender: FDA-Public Use
  Company Number: US-ABBVIE-17P-163-1896217-00

PATIENT
  Sex: Female

DRUGS (1)
  1. LUPRON DEPOT [Suspect]
     Active Substance: LEUPROLIDE ACETATE
     Indication: ENDOMETRIOSIS
     Route: 030
     Dates: start: 201208, end: 2012

REACTIONS (8)
  - Urethritis [Not Recovered/Not Resolved]
  - Mass [Unknown]
  - Wound [Recovered/Resolved]
  - Abdominal pain [Unknown]
  - Uterine adhesions [Recovered/Resolved]
  - Renal injury [Recovered/Resolved]
  - Obstruction [Recovered/Resolved]
  - Uterine mass [Recovered/Resolved]

NARRATIVE: CASE EVENT DATE: 2017
